FAERS Safety Report 7911979-5 (Version None)
Quarter: 2011Q4

REPORT INFORMATION
  Report Type: 
  Country: None (occurrence: None)
  Receive Date: 20111114
  Receipt Date: 20111004
  Transmission Date: 20120403
  Serious: Yes (Hospitalization)
  Sender: FDA-Public Use
  Company Number: US-ROCHE-1008290

PATIENT
  Sex: Female

DRUGS (3)
  1. AVASTIN [Suspect]
     Indication: MALIGNANT PERITONEAL NEOPLASM
     Dosage: OVER 30-90 MINS ON DAY 1
     Dates: start: 20110511
  2. CARBOPLATIN [Suspect]
     Indication: MALIGNANT PERITONEAL NEOPLASM
     Dosage: 6 AUC, ON DAY 1
     Dates: start: 20110511
  3. PACLITAXEL [Suspect]
     Indication: MALIGNANT PERITONEAL NEOPLASM
     Dosage: OVER 1 HR ON DAYS 1, 8 + 15
     Route: 042
     Dates: start: 20110511

REACTIONS (9)
  - SMALL INTESTINAL OBSTRUCTION [None]
  - EMBOLISM [None]
  - SEROMA [None]
  - WEIGHT DECREASED [None]
  - PLEURAL EFFUSION [None]
  - HYPOXIA [None]
  - ABDOMINAL INFECTION [None]
  - DYSPNOEA [None]
  - VAGINAL FISTULA [None]
